FAERS Safety Report 18133453 (Version 2)
Quarter: 2022Q1

REPORT INFORMATION
  Report Type: Spontaneous
  Country: US (occurrence: US)
  Receive Date: 20200811
  Receipt Date: 20220120
  Transmission Date: 20220423
  Serious: Yes (Other)
  Sender: FDA-Public Use
  Company Number: US-GLAXOSMITHKLINE-US2020156189

PATIENT
  Sex: Female

DRUGS (6)
  1. ZANTAC [Suspect]
     Active Substance: RANITIDINE HYDROCHLORIDE
  2. RANITIDINE [Suspect]
     Active Substance: RANITIDINE
  3. ZANTAC [Suspect]
     Active Substance: RANITIDINE HYDROCHLORIDE
     Indication: Gastric cancer
     Dosage: UNKNOWN AT THIS TIME BOTH
     Route: 065
     Dates: start: 201103, end: 201510
  4. ZANTAC [Suspect]
     Active Substance: RANITIDINE HYDROCHLORIDE
     Indication: Gastric cancer
     Dosage: UNKNOWN AT THIS TIME BOTH
     Route: 065
     Dates: start: 201103, end: 201510
  5. ZANTAC [Suspect]
     Active Substance: RANITIDINE HYDROCHLORIDE
     Indication: Gastric cancer
     Dosage: UNKNOWN AT THIS TIME BOTH
     Route: 065
     Dates: start: 201103, end: 201510
  6. RANITIDINE [Suspect]
     Active Substance: RANITIDINE
     Indication: Gastric cancer
     Dosage: UNKNOWN AT THIS TIME BOTH
     Route: 065
     Dates: start: 201103, end: 201510

REACTIONS (1)
  - Gastric cancer [Unknown]
